FAERS Safety Report 4377047-7 (Version None)
Quarter: 2004Q2

REPORT INFORMATION
  Report Type: 
  Country: None (occurrence: None)
  Receive Date: 20040614
  Receipt Date: 20020805
  Transmission Date: 20050107
  Serious: Yes (Hospitalization)
  Sender: FDA-Public Use
  Company Number: US-BRISTOL-MYERS SQUIBB COMPANY-11985595

PATIENT
  Age: 1 Day
  Sex: Male

DRUGS (6)
  1. ZERIT [Suspect]
     Route: 064
  2. ZERIT [Suspect]
     Route: 048
  3. VIDEX [Suspect]
     Route: 064
  4. VIDEX [Suspect]
     Dosage: 5 ML
     Route: 048
  5. VIRACEPT [Suspect]
     Route: 064
  6. FLUOREX [Concomitant]

REACTIONS (14)
  - BLOOD GLUCOSE INCREASED [None]
  - BLOOD LACTIC ACID INCREASED [None]
  - CAESAREAN SECTION [None]
  - DEVELOPMENTAL DELAY [None]
  - FOETAL ARRHYTHMIA [None]
  - FORCEPS DELIVERY [None]
  - HYPERTRIGLYCERIDAEMIA [None]
  - LACTIC ACIDOSIS [None]
  - MATERNAL DRUGS AFFECTING FOETUS [None]
  - MENTAL RETARDATION SEVERITY UNSPECIFIED [None]
  - NEONATAL DISORDER [None]
  - PREGNANCY [None]
  - SPEECH DISORDER [None]
  - THINKING ABNORMAL [None]
